FAERS Safety Report 13387261 (Version 2)
Quarter: 2017Q2

REPORT INFORMATION
  Report Type: Spontaneous
  Country: GB (occurrence: GB)
  Receive Date: 20170330
  Receipt Date: 20170405
  Transmission Date: 20170830
  Serious: Yes (Life-Threatening, Hospitalization, Other)
  Sender: FDA-Public Use
  Company Number: GB-ABBVIE-17P-167-1927928-00

PATIENT
  Age: 7 Year
  Sex: Female

DRUGS (1)
  1. SODIUM VALPROATE [Suspect]
     Active Substance: VALPROATE SODIUM
     Indication: EPILEPTIC ENCEPHALOPATHY
     Route: 065

REACTIONS (10)
  - Dry mouth [Recovering/Resolving]
  - Tachycardia [Recovering/Resolving]
  - Oedema [Recovering/Resolving]
  - Peripheral coldness [Recovering/Resolving]
  - Swelling face [Recovering/Resolving]
  - Weight increased [Recovering/Resolving]
  - Dyspnoea [Recovering/Resolving]
  - Acidosis hyperchloraemic [Unknown]
  - Fanconi syndrome [Recovering/Resolving]
  - Tachypnoea [Recovering/Resolving]
